FAERS Safety Report 16780761 (Version 3)
Quarter: 2019Q4

REPORT INFORMATION
  Report Type: Spontaneous
  Country: AR (occurrence: AR)
  Receive Date: 20190906
  Receipt Date: 20191001
  Transmission Date: 20200122
  Serious: Yes (Other)
  Sender: FDA-Public Use
  Company Number: AR-ROCHE-2395194

PATIENT
  Age: 32 Year
  Sex: Female

DRUGS (11)
  1. PACLITAXEL. [Concomitant]
     Active Substance: PACLITAXEL
     Indication: BREAST CANCER
     Dosage: 12 CYCLES
     Route: 065
     Dates: end: 201509
  2. PAMIDRONATE [Concomitant]
     Active Substance: PAMIDRONATE DISODIUM
     Indication: BREAST CANCER
     Route: 065
     Dates: end: 201509
  3. ANASTROZOLE. [Concomitant]
     Active Substance: ANASTROZOLE
     Indication: BREAST CANCER
     Route: 065
     Dates: end: 201509
  4. OMEPRAZOLE. [Concomitant]
     Active Substance: OMEPRAZOLE
     Route: 065
  5. CAPECITABINE. [Suspect]
     Active Substance: CAPECITABINE
     Indication: BREAST CANCER
     Route: 048
  6. LAPATINIB [Concomitant]
     Active Substance: LAPATINIB
     Indication: BREAST CANCER
  7. TRASTUZUMAB. [Suspect]
     Active Substance: TRASTUZUMAB
     Indication: BREAST CANCER
     Route: 065
     Dates: end: 201509
  8. KADCYLA [Suspect]
     Active Substance: ADO-TRASTUZUMAB EMTANSINE
     Indication: BREAST CANCER
     Route: 042
     Dates: start: 201602
  9. LOPERAMIDE [Concomitant]
     Active Substance: LOPERAMIDE
  10. RELIVERAN [METOCLOPRAMIDE HYDROCHLORIDE] [Concomitant]
  11. PAMIDRONATE [Concomitant]
     Active Substance: PAMIDRONATE DISODIUM
     Route: 065
     Dates: start: 201602

REACTIONS (7)
  - Injury [Unknown]
  - Infection [Unknown]
  - Diarrhoea [Unknown]
  - Abdominal pain upper [Unknown]
  - Tooth disorder [Unknown]
  - Vomiting [Recovered/Resolved]
  - Femoral neck fracture [Unknown]
